FAERS Safety Report 12099946 (Version 1)
Quarter: 2016Q1

REPORT INFORMATION
  Report Type: Spontaneous
  Country: US (occurrence: None)
  Receive Date: 20160219
  Receipt Date: 20160219
  Transmission Date: 20160526
  Serious: No
  Sender: FDA-Public Use
  Company Number: None

PATIENT
  Age: 24 Year
  Sex: Male

DRUGS (1)
  1. TRINTELLIX [Suspect]
     Active Substance: VORTIOXETINE HYDROBROMIDE
     Indication: DEPRESSION
     Route: 048
     Dates: start: 20151012, end: 20160121

REACTIONS (7)
  - Muscle spasms [None]
  - Diarrhoea [None]
  - Dyspnoea [None]
  - Chest pain [None]
  - Defaecation urgency [None]
  - Irritable bowel syndrome [None]
  - Abdominal pain [None]
